FAERS Safety Report 9990251 (Version 1)
Quarter: 2014Q1

REPORT INFORMATION
  Report Type: Report from Study
  Country: US (occurrence: US)
  Receive Date: 20140310
  Receipt Date: 20140310
  Transmission Date: 20141002
  Serious: No
  Sender: FDA-Public Use
  Company Number: US-ABBVIE-13P-163-1130836-00

PATIENT
  Sex: Male
  Weight: 67.65 kg

DRUGS (6)
  1. HUMIRA [Suspect]
     Indication: CROHN^S DISEASE
     Route: 058
     Dates: start: 201203, end: 201304
  2. HUMIRA [Suspect]
     Route: 058
     Dates: start: 201304, end: 20130802
  3. 6MP [Suspect]
     Indication: PRODUCT USED FOR UNKNOWN INDICATION
  4. 6MP [Suspect]
  5. 6MP [Suspect]
  6. PENTASA [Concomitant]
     Indication: PRODUCT USED FOR UNKNOWN INDICATION

REACTIONS (3)
  - Colitis [Unknown]
  - Drug ineffective [Unknown]
  - Leukopenia [Unknown]
